FAERS Safety Report 5524977-6 (Version None)
Quarter: 2007Q4

REPORT INFORMATION
  Report Type: 
  Country: None (occurrence: None)
  Receive Date: 20071126
  Receipt Date: 20071112
  Transmission Date: 20080405
  Serious: Yes (Hospitalization)
  Sender: FDA-Public Use
  Company Number: DE-ELI_LILLY_AND_COMPANY-DE200711003376

PATIENT
  Age: 64 Year
  Sex: Male
  Weight: 91.5 kg

DRUGS (8)
  1. OLANZAPINE [Suspect]
     Dosage: 7.5 MG, DAILY (1/D)
     Route: 048
     Dates: start: 20060101, end: 20061212
  2. OLANZAPINE [Suspect]
     Dosage: 10 MG, DAILY (1/D)
     Route: 048
     Dates: start: 20061213
  3. FALITHROM [Concomitant]
     Dosage: 1 D/F, DAILY (1/D)
     Route: 048
     Dates: end: 20061213
  4. METOPROLOL SUCCINATE [Concomitant]
     Dosage: 47.5 MG, DAILY (1/D)
     Route: 048
  5. RAMIPRIL [Concomitant]
     Dosage: 25 MG, DAILY (1/D)
     Route: 048
  6. SIMVABETA [Concomitant]
     Dosage: 10 MG, DAILY (1/D)
     Route: 048
  7. LITHIUM CARBONATE [Concomitant]
     Dosage: 400 MG, DAILY (1/D)
     Route: 048
     Dates: start: 19850101, end: 20061212
  8. MANINIL [Concomitant]
     Dosage: 2 D/F, DAILY (1/D)
     Route: 048

REACTIONS (2)
  - GRAND MAL CONVULSION [None]
  - HOSPITALISATION [None]
